FAERS Safety Report 7985932-X (Version None)
Quarter: 2011Q4

REPORT INFORMATION
  Report Type: 
  Country: None (occurrence: None)
  Receive Date: 20111216
  Receipt Date: 20111209
  Transmission Date: 20120403
  Serious: Yes (Hospitalization)
  Sender: FDA-Public Use
  Company Number: NZ-B.I. PHARMACEUTICALS,INC./RIDGEFIELD-2011-AU-02424AU

PATIENT
  Sex: Male
  Weight: 80 kg

DRUGS (7)
  1. PREDNISONE [Concomitant]
     Indication: HEART TRANSPLANT
     Dosage: 2.5 MG
     Route: 048
     Dates: start: 20110103
  2. PRADAXA [Suspect]
     Indication: ATRIAL FIBRILLATION
     Dosage: 220 MG
     Route: 048
     Dates: start: 20110726, end: 20110808
  3. SIMVASTATIN [Suspect]
     Indication: HEART TRANSPLANT
     Dosage: 20 MG
     Route: 048
     Dates: start: 20110726, end: 20110829
  4. MYCOPHENOLATE MOFETIL [Concomitant]
     Indication: HEART TRANSPLANT
     Dosage: 3000 MG
     Route: 048
     Dates: start: 20110103
  5. DILTIAZEM HCL [Concomitant]
     Indication: HEART TRANSPLANT
     Dosage: 12 MG
     Route: 048
     Dates: start: 20110103
  6. CYCLOSPORINE [Concomitant]
     Indication: HEART TRANSPLANT
     Dosage: 100 MG
     Route: 048
     Dates: start: 20110103
  7. VFEND [Suspect]
     Indication: FUNGAL INFECTION
     Dosage: 1200 MG
     Route: 048
     Dates: start: 20110315, end: 20110907

REACTIONS (9)
  - BLOOD CREATINE PHOSPHOKINASE INCREASED [None]
  - FLUORIDE INCREASED [None]
  - X-RAY ABNORMAL [None]
  - LIVER FUNCTION TEST ABNORMAL [None]
  - ASTHENIA [None]
  - PERIOSTITIS [None]
  - PAIN [None]
  - MYALGIA [None]
  - BONE PAIN [None]
